FAERS Safety Report 15943550 (Version 2)
Quarter: 2019Q3

REPORT INFORMATION
  Report Type: Report from Study
  Country: DE (occurrence: DE)
  Receive Date: 20190210
  Receipt Date: 20190830
  Transmission Date: 20191004
  Serious: Yes (Other)
  Sender: FDA-Public Use
  Company Number: PHHY2018DE036162

PATIENT
  Age: 72 Year
  Sex: Male

DRUGS (7)
  1. TASIGNA [Suspect]
     Active Substance: NILOTINIB
     Dosage: 600 MG, BID
     Route: 065
  2. ASPIRIN. [Concomitant]
     Active Substance: ASPIRIN
     Indication: PRODUCT USED FOR UNKNOWN INDICATION
     Route: 065
  3. GLIVEC [Suspect]
     Active Substance: IMATINIB MESYLATE
     Indication: CHRONIC MYELOID LEUKAEMIA
     Dosage: 400 MG, QD
     Route: 065
     Dates: start: 201812
  4. TASIGNA [Suspect]
     Active Substance: NILOTINIB
     Dosage: 400 MG, BID
     Route: 065
  5. TASIGNA [Suspect]
     Active Substance: NILOTINIB
     Indication: CHRONIC MYELOID LEUKAEMIA
     Dosage: 400 MG, QD, (2 X 200 MG/D)
     Route: 048
     Dates: start: 2013, end: 201810
  6. TASIGNA [Suspect]
     Active Substance: NILOTINIB
     Dosage: 400 MG, BID
     Route: 065
  7. PRIMIDONE. [Concomitant]
     Active Substance: PRIMIDONE
     Indication: PRODUCT USED FOR UNKNOWN INDICATION
     Route: 065

REACTIONS (18)
  - Transient ischaemic attack [Unknown]
  - Eye oedema [Unknown]
  - Myalgia [Not Recovered/Not Resolved]
  - Amylase increased [Unknown]
  - Low density lipoprotein increased [Unknown]
  - Peripheral arterial occlusive disease [Unknown]
  - Muscle spasms [Not Recovered/Not Resolved]
  - Amylase abnormal [Unknown]
  - Cerebral infarction [Unknown]
  - Dizziness [Unknown]
  - Pain in extremity [Not Recovered/Not Resolved]
  - Lipase increased [Unknown]
  - Carotid artery stenosis [Unknown]
  - Fluid retention [Not Recovered/Not Resolved]
  - Cataract [Unknown]
  - Dizziness exertional [Unknown]
  - Nervous system disorder [Unknown]
  - Gliosis [Unknown]

NARRATIVE: CASE EVENT DATE: 2018
